FAERS Safety Report 20756215 (Version 1)
Quarter: 2022Q2

REPORT INFORMATION
  Report Type: Spontaneous
  Country: US (occurrence: None)
  Receive Date: 20220426
  Receipt Date: 20220426
  Transmission Date: 20220721
  Serious: Yes (Hospitalization)
  Sender: FDA-Public Use
  Company Number: None

PATIENT
  Age: 56 Year
  Sex: Female
  Weight: 59.87 kg

DRUGS (12)
  1. PIQRAY [Suspect]
     Active Substance: ALPELISIB
     Indication: Breast cancer female
     Dosage: FREQUENCY : DAILY;?
     Route: 048
  2. CALCIUM CARBONATE\CHOLECALCIFEROL [Concomitant]
     Active Substance: CALCIUM CARBONATE\CHOLECALCIFEROL
  3. CEFDINIR [Concomitant]
  4. DEXAMETHASONE [Concomitant]
  5. FENTANYL [Concomitant]
     Active Substance: FENTANYL
  6. GABAPENTIN [Concomitant]
  7. NORCO [Concomitant]
  8. LETROZOLE [Concomitant]
  9. LEVOTHYROXINE [Concomitant]
  10. OXYCODONE [Concomitant]
  11. PERCOCET [Concomitant]
  12. VENLAFAXINE [Concomitant]

REACTIONS (1)
  - Hepatic failure [None]
